FAERS Safety Report 6163676-7 (Version None)
Quarter: 2009Q2

REPORT INFORMATION
  Report Type: 
  Country: None (occurrence: None)
  Receive Date: 20090422
  Receipt Date: 20090417
  Transmission Date: 20091009
  Serious: Yes (Other)
  Sender: FDA-Public Use
  Company Number: CA-ASTRAZENECA-2009UW09817

PATIENT
  Sex: Male

DRUGS (4)
  1. CRESTOR [Suspect]
     Indication: BLOOD CHOLESTEROL INCREASED
     Route: 048
  2. DIOVAN [Concomitant]
  3. GLYCON [Concomitant]
  4. GLYBURIDE [Concomitant]

REACTIONS (4)
  - ABDOMINAL DISTENSION [None]
  - HEPATITIS B [None]
  - LUNG DISORDER [None]
  - WEIGHT INCREASED [None]
